FAERS Safety Report 14628316 (Version 1)
Quarter: 2018Q1

REPORT INFORMATION
  Report Type: Spontaneous
  Country: US (occurrence: US)
  Receive Date: 20180312
  Receipt Date: 20180312
  Transmission Date: 20180509
  Serious: No
  Sender: FDA-Public Use
  Company Number: US-ALLERGAN-1749891US

PATIENT
  Age: 64 Year
  Sex: Female
  Weight: 141 kg

DRUGS (3)
  1. PULMICORT TURBUHALER [Concomitant]
     Active Substance: BUDESONIDE
     Indication: PRODUCT USED FOR UNKNOWN INDICATION
     Dosage: 180 MCG, BID
     Route: 055
  2. ESTRACE [Suspect]
     Active Substance: ESTRADIOL
     Indication: PRODUCT USED FOR UNKNOWN INDICATION
     Dosage: 2 G, QD
     Route: 067
     Dates: start: 20170811, end: 201708
  3. ESTRACE [Suspect]
     Active Substance: ESTRADIOL
     Dosage: 1 G, MWF
     Route: 067
     Dates: start: 20170825, end: 20170922

REACTIONS (2)
  - Malabsorption from application site [Unknown]
  - Abdominal discomfort [Recovered/Resolved]

NARRATIVE: CASE EVENT DATE: 201708
